FAERS Safety Report 6151272-7 (Version None)
Quarter: 2009Q2

REPORT INFORMATION
  Report Type: 
  Country: None (occurrence: None)
  Receive Date: 20090410
  Receipt Date: 20070523
  Transmission Date: 20091009
  Serious: Yes (Hospitalization, Other)
  Sender: FDA-Public Use
  Company Number: US-ASTRAZENECA-2006UW22195

PATIENT
  Age: 52 Year
  Sex: Female
  Weight: 80 kg

DRUGS (53)
  1. SEROQUEL [Suspect]
     Dosage: 25 MG-150 MG
     Route: 048
     Dates: start: 20000217
  2. DEXTROMETHORPHAN [Concomitant]
  3. TRICOR [Concomitant]
  4. NASONEX [Concomitant]
  5. LOPID [Concomitant]
  6. LIPITOR [Concomitant]
  7. NIFEDIPINE [Concomitant]
  8. TYLENOL [Concomitant]
  9. SYNTHROID [Concomitant]
  10. ADVAIR HFA [Concomitant]
  11. TRAZODONE HCL [Concomitant]
  12. RHINOCORT [Concomitant]
  13. DURAGESIC-100 [Concomitant]
  14. CITRUCEL [Concomitant]
  15. VALIUM [Concomitant]
  16. ALBUTEROL [Concomitant]
  17. CYCLOBENZAPRINE [Concomitant]
  18. ASTELIN [Concomitant]
  19. PROTONIX [Concomitant]
  20. GLUCOSAMINE [Concomitant]
  21. VIOXX [Concomitant]
  22. ZITHROMAX [Concomitant]
  23. CIPROFLOXACIN HCL [Concomitant]
  24. ATROVENT [Concomitant]
  25. WESTCORT [Concomitant]
  26. PEPCID [Concomitant]
  27. ULTRAM [Concomitant]
  28. MOTRIN [Concomitant]
  29. CLOTRIMAZOLE [Concomitant]
  30. COGENTIN [Concomitant]
  31. EFFEXOR [Concomitant]
  32. ESTRADIOL [Concomitant]
  33. KLONOPIN [Concomitant]
  34. CELEXIN [Concomitant]
  35. ZYRTEC [Concomitant]
  36. TEQUIN [Concomitant]
  37. PAXIL [Concomitant]
  38. SINGULAIR [Concomitant]
  39. BENEDRYL [Concomitant]
  40. ZYPREXA [Concomitant]
  41. LEVAQUIN [Concomitant]
  42. LEXAPRO [Concomitant]
  43. BISACODYL [Concomitant]
  44. PHENERGAN [Concomitant]
  45. HALDOL [Concomitant]
  46. AVELOX [Concomitant]
  47. CLINDAMYCIN HCL [Concomitant]
  48. TEGRETOL [Concomitant]
  49. ZOLOFT [Concomitant]
  50. DOXEPIN HCL [Concomitant]
  51. NAVANE [Concomitant]
  52. CORTISPORIN [Concomitant]
  53. CHONDROITIN [Concomitant]

REACTIONS (55)
  - ABDOMINAL PAIN [None]
  - ABSCESS ORAL [None]
  - ANXIETY [None]
  - ARTHRALGIA [None]
  - BACK PAIN [None]
  - BRONCHITIS [None]
  - CHEST PAIN [None]
  - CHILLS [None]
  - COCCYDYNIA [None]
  - CONSTIPATION [None]
  - COUGH [None]
  - DIARRHOEA [None]
  - DIVERTICULUM INTESTINAL [None]
  - DIZZINESS [None]
  - DYSPNOEA [None]
  - DYSURIA [None]
  - EAR HAEMORRHAGE [None]
  - EAR PAIN [None]
  - FLANK PAIN [None]
  - HAND FRACTURE [None]
  - HEADACHE [None]
  - HYPERGLYCAEMIA [None]
  - HYPERHIDROSIS [None]
  - HYPOAESTHESIA [None]
  - INTERVERTEBRAL DISC DISORDER [None]
  - MELANOCYTIC NAEVUS [None]
  - MIGRAINE [None]
  - MUSCULOSKELETAL PAIN [None]
  - NASAL CONGESTION [None]
  - NAUSEA [None]
  - NECK PAIN [None]
  - OEDEMA PERIPHERAL [None]
  - OROPHARYNGEAL PAIN [None]
  - OTITIS EXTERNA [None]
  - PAIN IN EXTREMITY [None]
  - PAIN IN JAW [None]
  - PARANOIA [None]
  - PLEURISY [None]
  - PNEUMONIA [None]
  - POLLAKIURIA [None]
  - PYREXIA [None]
  - RASH [None]
  - RECTAL HAEMORRHAGE [None]
  - RHINITIS [None]
  - RHINORRHOEA [None]
  - SCHIZOAFFECTIVE DISORDER [None]
  - SPINAL OSTEOARTHRITIS [None]
  - SUICIDAL IDEATION [None]
  - TENDERNESS [None]
  - THIRST [None]
  - TOOTHACHE [None]
  - UPPER RESPIRATORY TRACT INFECTION [None]
  - VISION BLURRED [None]
  - VOMITING [None]
  - WEIGHT DECREASED [None]
